FAERS Safety Report 9197174 (Version 3)
Quarter: 2013Q4

REPORT INFORMATION
  Report Type: Spontaneous
  Country: CA (occurrence: CA)
  Receive Date: 20130328
  Receipt Date: 20131220
  Transmission Date: 20140711
  Serious: Yes (Death)
  Sender: FDA-Public Use
  Company Number: CA-PFIZER INC-2013097638

PATIENT
  Age: 65 Year
  Sex: Female

DRUGS (2)
  1. INLYTA [Suspect]
     Indication: RENAL CELL CARCINOMA
     Dosage: 5 MG, 2X/DAY, CYCLE 1
     Dates: start: 20121023
  2. INLYTA [Suspect]
     Dosage: 10 MG, 2X/DAY, CYCLES 2-4

REACTIONS (1)
  - Death [Fatal]
